FAERS Safety Report 24741745 (Version 1)
Quarter: 2024Q4

REPORT INFORMATION
  Report Type: Spontaneous
  Country: FI (occurrence: FI)
  Receive Date: 20241217
  Receipt Date: 20241217
  Transmission Date: 20250114
  Serious: Yes (Disabling)
  Sender: JOHNSON AND JOHNSON
  Company Number: None

PATIENT
  Age: 13 Year
  Sex: Male

DRUGS (5)
  1. RISPERDAL [Suspect]
     Active Substance: RISPERIDONE
     Indication: Behaviour disorder
     Dosage: IN THE MORNING 2. IN THE EVENING ON THE 1ST DAY 1 TABLET. ALSO BEFORE 1 MG HALVED 1 MG OF RISPERIDON
     Route: 048
     Dates: start: 2013
  2. ARIPIPRAZOLE [Suspect]
     Active Substance: ARIPIPRAZOLE
     Indication: Behaviour disorder
     Dosage: ARIPIPRAZOLE IN ADDITION 15 MG 1 TIME
     Route: 048
     Dates: start: 20240825
  3. ARIPIPRAZOLE [Suspect]
     Active Substance: ARIPIPRAZOLE
     Indication: Aggression
  4. RISPERIDONE [Suspect]
     Active Substance: RISPERIDONE
     Indication: Behaviour disorder
     Dosage: 0.5 MG 2 TAB. MORNING 1 DAY AND ONE IN THE EVENING. A TOTAL OF 2 MG, 2.5 MG ON VLI. ANOTHER DOCTOR A
     Route: 048
     Dates: start: 202206
  5. ATOMOXETINE HYDROCHLORIDE [Concomitant]
     Active Substance: ATOMOXETINE HYDROCHLORIDE
     Indication: Attention deficit hyperactivity disorder
     Dosage: 1 PER DAY.
     Route: 048
     Dates: start: 202207, end: 2022

REACTIONS (12)
  - Speech disorder [Not Recovered/Not Resolved]
  - Developmental regression [Not Recovered/Not Resolved]
  - Muscle twitching [Not Recovered/Not Resolved]
  - Hypersensitivity [Not Recovered/Not Resolved]
  - Intentional self-injury [Not Recovered/Not Resolved]
  - Cutaneous symptom [Not Recovered/Not Resolved]
  - Petit mal epilepsy [Not Recovered/Not Resolved]
  - Aggression [Not Recovered/Not Resolved]
  - Epilepsy [Not Recovered/Not Resolved]
  - Mental impairment [Not Recovered/Not Resolved]
  - Amnesia [Not Recovered/Not Resolved]
  - Anxiety [Not Recovered/Not Resolved]

NARRATIVE: CASE EVENT DATE: 20210101
